FAERS Safety Report 5065521-X (Version None)
Quarter: 2006Q3

REPORT INFORMATION
  Report Type: 
  Country: None (occurrence: None)
  Receive Date: 20060731
  Receipt Date: 20060221
  Transmission Date: 20061208
  Serious: Yes (Hospitalization)
  Sender: FDA-Public Use
  Company Number: US-GLAXOSMITHKLINE-A0594630A

PATIENT
  Age: 59 Year
  Sex: Male
  Weight: 128.6 kg

DRUGS (8)
  1. PAXIL CR [Suspect]
     Indication: ANXIETY
     Dosage: 25MG PER DAY
     Route: 048
     Dates: start: 20051201, end: 20060306
  2. BETA-BLOCKERS [Concomitant]
  3. AVANDIA [Concomitant]
  4. INSULIN [Concomitant]
  5. DIOVAN [Concomitant]
  6. PROCARDIA XL [Concomitant]
  7. GLUCOPHAGE [Concomitant]
  8. LIPITOR [Concomitant]

REACTIONS (7)
  - ANGINA UNSTABLE [None]
  - AORTIC ARTERIOSCLEROSIS [None]
  - ATRIAL TACHYCARDIA [None]
  - CARDIAC FLUTTER [None]
  - PALPITATIONS [None]
  - RESTRICTIVE PULMONARY DISEASE [None]
  - VENTRICULAR EXTRASYSTOLES [None]
